FAERS Safety Report 8023991-9 (Version None)
Quarter: 2011Q4

REPORT INFORMATION
  Report Type: 
  Country: None (occurrence: None)
  Receive Date: 20111130
  Receipt Date: 20101122
  Transmission Date: 20120403
  Serious: Yes (Hospitalization)
  Sender: FDA-Public Use
  Company Number: 318451

PATIENT
  Age: 13 Year
  Sex: Female
  Weight: 59.4 kg

DRUGS (4)
  1. NOVOLOG [Suspect]
  2. NOVOLOG [Suspect]
     Indication: TYPE 1 DIABETES MELLITUS
     Dosage: 5-6 UNITS WITH EACH MEAL
     Dates: start: 20040101
  3. LANTUS [Concomitant]
  4. RANITIDINE HYDROCHLORIDE [Concomitant]

REACTIONS (2)
  - BLOOD GLUCOSE INCREASED [None]
  - DRUG INEFFECTIVE [None]
